FAERS Safety Report 9569852 (Version 2)
Quarter: 2013Q3

REPORT INFORMATION
  Report Type: Spontaneous
  Country: US (occurrence: US)
  Receive Date: 20130930
  Receipt Date: 20130930
  Transmission Date: 20140515
  Serious: Yes (Other)
  Sender: FDA-Public Use
  Company Number: US-AMGEN-USASP2013041559

PATIENT
  Age: 59 Year
  Sex: Female
  Weight: 120.64 kg

DRUGS (16)
  1. ENBREL [Suspect]
     Indication: RHEUMATOID ARTHRITIS
     Dosage: 50 MG, QWK
     Route: 058
     Dates: start: 2003
  2. FOLIC ACID [Concomitant]
     Dosage: 1 MG, QD
  3. ESTRACE [Concomitant]
     Dosage: 1 MG, QD
     Route: 048
  4. LIPITOR [Concomitant]
     Dosage: 10 MG, QHS [ONCE A DAY (AT BEDTIME)]
  5. CALCIUM W/VITAMIN D                /00944201/ [Concomitant]
     Dosage: 1200 MG, QD
  6. OMEGA 3                            /01334101/ [Concomitant]
     Dosage: UNK UNK, QD
  7. MOBIC [Concomitant]
     Dosage: 15 MG, QD
  8. PLAQUENIL                          /00072602/ [Concomitant]
     Dosage: 200 MG, QD
  9. NEXIUM                             /01479302/ [Concomitant]
     Dosage: 40 MG, QD
     Route: 048
  10. METHOTREXATE [Concomitant]
     Dosage: 2.5 MILLIGRAM 4 TABLETS, QWK
     Route: 048
  11. BIOTIN [Concomitant]
     Dosage: UNK, QD
  12. POTASSIUM [Concomitant]
     Dosage: UNK UNK, QD
  13. ALLERGY MEDICATION [Concomitant]
     Dosage: UNK UNK, Q3WK
  14. FLONASE                            /00908302/ [Concomitant]
     Dosage: SPRAY 2 SPRAY(S) ONCE A DAY PRN
  15. CLARINEX                           /01202601/ [Concomitant]
     Dosage: ONCE A DAY PRN
  16. PREDNISONE [Concomitant]
     Dosage: UNK

REACTIONS (7)
  - Pneumonia [Recovered/Resolved]
  - Urinary tract infection [Not Recovered/Not Resolved]
  - Dyspnoea [Recovered/Resolved]
  - Dizziness [Recovered/Resolved]
  - Cough [Recovered/Resolved]
  - Asthenia [Recovered/Resolved]
  - Sinusitis [Recovered/Resolved]
